FAERS Safety Report 14708252 (Version 4)
Quarter: 2025Q3

REPORT INFORMATION
  Report Type: Spontaneous
  Country: EU (occurrence: EU)
  Receive Date: 20180403
  Receipt Date: 20250825
  Transmission Date: 20251020
  Serious: Yes (Hospitalization, Other)
  Sender: ROCHE
  Company Number: EU-002147023-PHHY2014PL124846

PATIENT
  Age: 56 Year
  Sex: Male

DRUGS (8)
  1. VALGANCICLOVIR [Suspect]
     Active Substance: VALGANCICLOVIR
     Indication: Antiviral prophylaxis
     Route: 065
  2. MYCOPHENOLATE MOFETIL [Suspect]
     Active Substance: MYCOPHENOLATE MOFETIL
     Indication: Renal transplant
     Route: 065
  3. MYCOPHENOLATE MOFETIL [Suspect]
     Active Substance: MYCOPHENOLATE MOFETIL
     Indication: Immunosuppressant drug therapy
  4. PROGRAF [Suspect]
     Active Substance: TACROLIMUS
     Indication: Immunosuppression
     Route: 065
  5. METOPROLOL [Suspect]
     Active Substance: METOPROLOL
     Indication: Product used for unknown indication
     Route: 065
  6. TACROLIMUS [Suspect]
     Active Substance: TACROLIMUS
     Indication: Renal transplant
     Route: 065
  7. TACROLIMUS [Suspect]
     Active Substance: TACROLIMUS
     Indication: Immunosuppressant drug therapy
  8. LINEZOLID [Concomitant]
     Active Substance: LINEZOLID
     Indication: Product used for unknown indication
     Route: 042

REACTIONS (13)
  - Sinus bradycardia [Unknown]
  - Klebsiella infection [Unknown]
  - General physical health deterioration [Unknown]
  - Immunosuppressant drug level increased [Unknown]
  - Enterococcal infection [Unknown]
  - Escherichia urinary tract infection [Unknown]
  - Urine output decreased [Unknown]
  - Hydronephrosis [Unknown]
  - Transplant dysfunction [Recovering/Resolving]
  - Altered state of consciousness [Unknown]
  - Dysuria [Unknown]
  - Amylase increased [Unknown]
  - Abdominal pain [Unknown]
